FAERS Safety Report 7228905-7 (Version None)
Quarter: 2011Q1

REPORT INFORMATION
  Report Type: 
  Country: None (occurrence: None)
  Receive Date: 20110117
  Receipt Date: 20110111
  Transmission Date: 20110831
  Serious: Yes (Life-Threatening, Hospitalization)
  Sender: FDA-Public Use
  Company Number: PL-ELI_LILLY_AND_COMPANY-PL201101002368

PATIENT
  Age: 72 Year
  Sex: Male
  Weight: 76 kg

DRUGS (10)
  1. ACETYLSALICYLIC ACID [Concomitant]
     Indication: CORONARY ARTERY DISEASE
     Dates: start: 20110104
  2. VERAPAMIL [Concomitant]
     Indication: CORONARY ARTERY DISEASE
     Dates: start: 20090101
  3. PRASUGREL HYDROCHLORIDE [Suspect]
     Dosage: 10 MG, DAILY (1/D)
     Route: 048
     Dates: start: 20110105
  4. ATORVASTATIN CALCIUM [Concomitant]
     Indication: CORONARY ARTERY DISEASE
     Dates: start: 20110104
  5. PLACEBO [Suspect]
     Indication: ACUTE MYOCARDIAL INFARCTION
     Dosage: PCI LOADING DOSE
     Route: 048
     Dates: start: 20110104, end: 20110105
  6. PRASUGREL HYDROCHLORIDE [Suspect]
     Indication: ACUTE MYOCARDIAL INFARCTION
     Dosage: PRETREATMENT LOADING DOSE
     Route: 048
     Dates: start: 20110104, end: 20110105
  7. RAMIPRIL [Concomitant]
     Indication: CORONARY ARTERY DISEASE
     Dates: start: 20110104
  8. FUROSEMIDE [Concomitant]
     Indication: CORONARY ARTERY DISEASE
     Dates: start: 20110104
  9. PRASUGREL HYDROCHLORIDE [Suspect]
     Dosage: PCI LOADING DOSE
     Route: 048
     Dates: start: 20110104, end: 20110105
  10. SALMETEROL [Concomitant]
     Indication: ASTHMA
     Dates: start: 19940101

REACTIONS (2)
  - MESENTERIC ARTERY THROMBOSIS [None]
  - SPLENIC INFARCTION [None]
